FAERS Safety Report 5851867-1 (Version None)
Quarter: 2008Q3

REPORT INFORMATION
  Report Type: 
  Country: None (occurrence: None)
  Receive Date: 20080819
  Receipt Date: 20080806
  Transmission Date: 20090109
  Serious: Yes (Hospitalization, Other)
  Sender: FDA-Public Use
  Company Number: 2008-02428

PATIENT
  Age: 60 Year
  Sex: Female
  Weight: 70 kg

DRUGS (9)
  1. VELCADE [Suspect]
     Indication: MULTIPLE MYELOMA
     Dosage: 1 MG/M2,   INTRAVENOUS
     Route: 042
     Dates: start: 20080602
  2. THALIDOMIDE [Suspect]
     Indication: MULTIPLE MYELOMA
     Dosage: 100 MG, ORAL; 250 MG, ORAL
     Route: 048
     Dates: start: 20080630, end: 20080710
  3. THALIDOMIDE [Suspect]
     Indication: MULTIPLE MYELOMA
     Dosage: 100 MG, ORAL; 250 MG, ORAL
     Route: 048
     Dates: start: 20080602
  4. DEXAMETHASONE TAB [Suspect]
     Indication: MULTIPLE MYELOMA
     Dosage: 40 MG, ORAL
     Route: 048
     Dates: start: 20080602
  5. FORLAX (MACROGOL) [Concomitant]
  6. MORPHINE SULFATE [Concomitant]
  7. MORPHINE SULFATE [Concomitant]
  8. BISOPROLOL FUMARATE [Concomitant]
  9. LOVENOX [Concomitant]

REACTIONS (3)
  - CHEST PAIN [None]
  - DYSPNOEA [None]
  - OEDEMA PERIPHERAL [None]
